FAERS Safety Report 8054160-4 (Version None)
Quarter: 2012Q1

REPORT INFORMATION
  Report Type: 
  Country: None (occurrence: None)
  Receive Date: 20120118
  Receipt Date: 20120116
  Transmission Date: 20120608
  Serious: Yes (Other)
  Sender: FDA-Public Use
  Company Number: GXKR2012DE000570

PATIENT
  Age: 76 Year
  Sex: Male

DRUGS (2)
  1. METOPROLOL SUCCINATE [Suspect]
     Dosage: 1 DF, QHS
     Route: 048
  2. METOPROLOL SUCCINATE [Suspect]
     Dosage: 1 DF IN THE MORNING

REACTIONS (3)
  - TACHYCARDIA [None]
  - ATRIAL FIBRILLATION [None]
  - DIZZINESS [None]
